FAERS Safety Report 5939084-8 (Version None)
Quarter: 2008Q4

REPORT INFORMATION
  Report Type: 
  Country: None (occurrence: None)
  Receive Date: 20081103
  Receipt Date: 20081030
  Transmission Date: 20090506
  Serious: Yes (Other)
  Sender: FDA-Public Use
  Company Number: A0754272A

PATIENT
  Age: 26 Year
  Sex: Female

DRUGS (5)
  1. LAMICTAL [Suspect]
     Indication: CONVULSION
     Dosage: 200MG TWICE PER DAY
     Route: 048
     Dates: start: 20030101, end: 20080801
  2. LAMOTRIGINE [Suspect]
     Indication: CONVULSION
     Dosage: 200MG TWICE PER DAY
     Route: 048
     Dates: start: 20080801
  3. DEPAKOTE [Suspect]
     Dates: start: 20040101, end: 20040101
  4. STRATTERA [Suspect]
     Indication: ATTENTION DEFICIT/HYPERACTIVITY DISORDER
     Dosage: 40MG PER DAY
     Dates: start: 20080101, end: 20081029
  5. NO CONCURRENT MEDICATION [Concomitant]

REACTIONS (6)
  - BLINDNESS [None]
  - DIZZINESS [None]
  - MICTURITION URGENCY [None]
  - NAUSEA [None]
  - STRABISMUS [None]
  - VISION BLURRED [None]
